FAERS Safety Report 23169276 (Version 1)
Quarter: 2023Q4

REPORT INFORMATION
  Report Type: Spontaneous
  Country: US (occurrence: US)
  Receive Date: 20231110
  Receipt Date: 20231110
  Transmission Date: 20240110
  Serious: No
  Sender: FDA-Public Use
  Company Number: US-AMGEN-USASP2023195549

PATIENT
  Age: 70 Year
  Sex: Female

DRUGS (5)
  1. BLINCYTO [Suspect]
     Active Substance: BLINATUMOMAB
     Indication: Acute lymphocytic leukaemia
     Dosage: UNK, EACH CYCLE WAS 4 WEEKS WITH A COUPLE OF WEEKS IN BETWEEN
     Route: 065
     Dates: start: 20230530, end: 2023
  2. BLINCYTO [Suspect]
     Active Substance: BLINATUMOMAB
     Dosage: UNK, EACH CYCLE WAS 4 WEEKS WITH A COUPLE OF WEEKS IN BETWEEN
     Route: 065
     Dates: start: 2023, end: 2023
  3. BLINCYTO [Suspect]
     Active Substance: BLINATUMOMAB
     Dosage: UNK, EACH CYCLE WAS 4 WEEKS WITH A COUPLE OF WEEKS IN BETWEEN
     Route: 065
     Dates: start: 2023, end: 2023
  4. BLINCYTO [Suspect]
     Active Substance: BLINATUMOMAB
     Dosage: UNK, EACH CYCLE WAS 4 WEEKS WITH A COUPLE OF WEEKS IN BETWEEN
     Route: 065
     Dates: start: 2023
  5. LEVOFLOXACIN [Concomitant]
     Active Substance: LEVOFLOXACIN
     Indication: Prophylaxis
     Dosage: UNK

REACTIONS (1)
  - Back pain [Not Recovered/Not Resolved]

NARRATIVE: CASE EVENT DATE: 20230101
